FAERS Safety Report 5380258-5 (Version None)
Quarter: 2007Q3

REPORT INFORMATION
  Report Type: 
  Country: None (occurrence: None)
  Receive Date: 20070706
  Receipt Date: 20070516
  Transmission Date: 20080115
  Serious: No
  Sender: FDA-Public Use
  Company Number: A0651557A

PATIENT
  Age: 61 Year
  Sex: Male

DRUGS (7)
  1. TYKERB [Suspect]
     Dosage: 5TAB PER DAY
     Route: 048
     Dates: start: 20070503, end: 20070514
  2. SIMVASTATIN [Concomitant]
  3. NEXIUM [Concomitant]
  4. MULTI-VITAMIN [Concomitant]
  5. GEMCITABINE HCL [Concomitant]
  6. IRINOTECAN HCL [Concomitant]
  7. CHOLESTYRAMINE [Concomitant]

REACTIONS (1)
  - RASH GENERALISED [None]
